FAERS Safety Report 18591102 (Version 2)
Quarter: 2020Q4

REPORT INFORMATION
  Report Type: Report from Study
  Country: FR (occurrence: FR)
  Receive Date: 20201208
  Receipt Date: 20201222
  Transmission Date: 20210114
  Serious: Yes (Hospitalization)
  Sender: FDA-Public Use
  Company Number: FR-ROCHE-2612756

PATIENT
  Age: 65 Year
  Sex: Female
  Weight: 81.2 kg

DRUGS (4)
  1. ATEZOLIZUMAB. [Suspect]
     Active Substance: ATEZOLIZUMAB
     Indication: CERVIX CARCINOMA
     Dosage: DATE OF LAST ADMINISTRATION PRIOR TO EPITAXIS 07/MAY/2020. ON 27/MAY/2020, SHE RECEIVED THE MOST REC
     Route: 042
     Dates: start: 20200417
  2. BEVACIZUMAB. [Suspect]
     Active Substance: BEVACIZUMAB
     Indication: CERVIX CARCINOMA
     Dosage: DATE OF LAST ADMINISTRATION PRIOR TO EPITAXIS 07/MAY/2020. ON 27/MAY/2020, SHE RECEIVED THE MOST REC
     Route: 042
     Dates: start: 20200417
  3. CISPLATIN. [Suspect]
     Active Substance: CISPLATIN
     Indication: CERVIX CARCINOMA
     Dosage: DATE OF LAST ADMINISTRATION PRIOR TO EPITAXIS 07/MAY/2020. ON 27/MAY/2020, SHE RECEIVED THE MOST REC
     Route: 042
     Dates: start: 20200417
  4. PACLITAXEL. [Suspect]
     Active Substance: PACLITAXEL
     Indication: CERVIX CARCINOMA
     Dosage: ON 07/MAY/2020, SHE RECEIVED THE MOST RECENT DOSE OF  PACLITAXEL PRIOR TO EPITAXIS.
     Route: 042
     Dates: start: 20200417

REACTIONS (2)
  - Infusion related reaction [Recovered/Resolved]
  - Epistaxis [Recovered/Resolved]

NARRATIVE: CASE EVENT DATE: 20200508
